FAERS Safety Report 17570678 (Version 2)
Quarter: 2020Q2

REPORT INFORMATION
  Report Type: Spontaneous
  Country: ES (occurrence: ES)
  Receive Date: 20200323
  Receipt Date: 20200506
  Transmission Date: 20200713
  Serious: Yes (Hospitalization, Other)
  Sender: FDA-Public Use
  Company Number: ES-AUROBINDO-AUR-APL-2020-014005

PATIENT
  Age: 74 Year
  Sex: Male
  Weight: 82 kg

DRUGS (11)
  1. SIMVASTATIN. [Concomitant]
     Active Substance: SIMVASTATIN
     Indication: HYPERTENSION
     Dosage: UNK
     Route: 065
  2. 5-FU [Suspect]
     Active Substance: FLUOROURACIL
     Indication: GASTROOESOPHAGEAL CANCER
     Dosage: 2500 MILLIGRAM, CYCLICAL (ONCE EVERY 2 WEEKS)
     Route: 042
     Dates: start: 20190829
  3. METFORMIN [Concomitant]
     Active Substance: METFORMIN HYDROCHLORIDE
     Indication: DIABETES MELLITUS
     Dosage: 850 MILLIGRAM
     Route: 065
  4. SIMVASTATIN. [Concomitant]
     Active Substance: SIMVASTATIN
     Indication: DYSLIPIDAEMIA
     Dosage: 20 MILLIGRAM
     Route: 065
  5. OXALIPLATIN. [Suspect]
     Active Substance: OXALIPLATIN
     Indication: GASTROOESOPHAGEAL CANCER
     Dosage: 85 MILLIGRAM, CYCLICAL (ONCE EVERY 2 WEEKS)
     Route: 042
     Dates: start: 20190829
  6. ADIRO [Concomitant]
     Active Substance: ASPIRIN
     Indication: ISCHAEMIC CARDIOMYOPATHY
     Dosage: 1 DOSAGE FORM
     Route: 065
  7. CALCIUM FOLINATE [Suspect]
     Active Substance: LEUCOVORIN CALCIUM
     Indication: GASTROOESOPHAGEAL CANCER
     Dosage: 200 MILLIGRAM, CYCLICAL (ONCE EVERY 2 WEEKS)
     Route: 042
     Dates: start: 20190829
  8. DOCETAXEL. [Suspect]
     Active Substance: DOCETAXEL
     Indication: GASTROOESOPHAGEAL CANCER
     Dosage: 50 MILLIGRAM, CYCLICAL (ONCE EVERY 2 WEEKS)
     Route: 042
     Dates: start: 20190829
  9. AVELUMAB [Concomitant]
     Active Substance: AVELUMAB
     Indication: GASTROOESOPHAGEAL CANCER
     Dosage: 10 MILLIGRAM/KILOGRAM, CYCLICAL (ONCE EVERY 2 WEEKS)
     Route: 042
     Dates: start: 20190829
  10. FLUOROURACIL. [Concomitant]
     Active Substance: FLUOROURACIL
     Indication: GASTROOESOPHAGEAL CANCER
     Dosage: 2500 MILLIGRAM, CYCLICAL
     Route: 042
     Dates: start: 20190829
  11. HUMULIN N [Concomitant]
     Active Substance: INSULIN HUMAN
     Indication: DIABETES MELLITUS
     Dosage: 26 OTHER
     Route: 065

REACTIONS (1)
  - Splenic abscess [Recovered/Resolved]

NARRATIVE: CASE EVENT DATE: 20200225
